FAERS Safety Report 6066507-9 (Version None)
Quarter: 2009Q1

REPORT INFORMATION
  Report Type: 
  Country: None (occurrence: None)
  Receive Date: 20090205
  Receipt Date: 20090129
  Transmission Date: 20090719
  Serious: Yes (Other)
  Sender: FDA-Public Use
  Company Number: US-ABBOTT-09P-163-0500390-00

PATIENT
  Sex: Female
  Weight: 65.83 kg

DRUGS (4)
  1. HUMIRA [Suspect]
     Indication: CROHN'S DISEASE
     Route: 058
     Dates: start: 20080101
  2. SYNTHROID [Concomitant]
     Indication: DRUG USE FOR UNKNOWN INDICATION
  3. IRON [Concomitant]
     Indication: DRUG USE FOR UNKNOWN INDICATION
  4. VITAMIN B-12 [Concomitant]
     Indication: DRUG USE FOR UNKNOWN INDICATION

REACTIONS (6)
  - CYST [None]
  - ERYTHEMA [None]
  - MASS [None]
  - PAIN [None]
  - POSTOPERATIVE WOUND INFECTION [None]
  - PURULENT DISCHARGE [None]
